FAERS Safety Report 7767878-5 (Version None)
Quarter: 2011Q3

REPORT INFORMATION
  Report Type: 
  Country: None (occurrence: None)
  Receive Date: 20110922
  Receipt Date: 20110425
  Transmission Date: 20111222
  Serious: No
  Sender: FDA-Public Use
  Company Number: US-ASTRAZENECA-2011SE23608

PATIENT
  Age: 49 Year
  Sex: Male
  Weight: 90.7 kg

DRUGS (7)
  1. SEROQUEL [Suspect]
     Route: 048
     Dates: end: 20110101
  2. EFFEXOR [Concomitant]
  3. REMERON [Concomitant]
  4. NEXIUM GENERIC [Suspect]
     Route: 048
  5. BENZOTROPIN [Concomitant]
  6. SEROQUEL [Suspect]
     Route: 048
  7. SEROQUEL [Suspect]
     Indication: BIPOLAR DISORDER
     Route: 048

REACTIONS (3)
  - HISTRIONIC PERSONALITY DISORDER [None]
  - MALAISE [None]
  - DRUG INEFFECTIVE [None]
